FAERS Safety Report 7384915-0 (Version None)
Quarter: 2011Q1

REPORT INFORMATION
  Report Type: 
  Country: None (occurrence: None)
  Receive Date: 20110322
  Receipt Date: 20110308
  Transmission Date: 20110831
  Serious: Yes (Other)
  Sender: FDA-Public Use
  Company Number: 2011-0511

PATIENT
  Age: 27 Year
  Sex: Female

DRUGS (4)
  1. DIAZEPAM [Concomitant]
  2. IBUPROFEN [Concomitant]
  3. ABOBOTULINUMTOXIN A [Suspect]
  4. DYSPORT [Suspect]
     Indication: TORTICOLLIS
     Dosage: 300 UNITS (300 UNITS, SINGLE CYCLE, PARENTERAL
     Route: 051
     Dates: start: 20110125, end: 20110125

REACTIONS (1)
  - INJECTION SITE PRURITUS [None]
